FAERS Safety Report 20477077 (Version 1)
Quarter: 2022Q1

REPORT INFORMATION
  Report Type: Spontaneous
  Country: JP (occurrence: JP)
  Receive Date: 20220215
  Receipt Date: 20220215
  Transmission Date: 20220423
  Serious: Yes (Other)
  Sender: FDA-Public Use
  Company Number: JP-NOVARTISPH-NVSJ2022JP002916

PATIENT
  Age: 79 Year
  Sex: Female

DRUGS (1)
  1. DONEPEZIL HYDROCHLORIDE [Suspect]
     Active Substance: DONEPEZIL HYDROCHLORIDE
     Indication: Dementia with Lewy bodies
     Dosage: 3 MG
     Route: 048

REACTIONS (2)
  - Hallucination, visual [Recovering/Resolving]
  - Concomitant disease aggravated [Recovering/Resolving]
